FAERS Safety Report 12667636 (Version 1)
Quarter: 2016Q3

REPORT INFORMATION
  Report Type: Other
  Country: DZ (occurrence: DZ)
  Receive Date: 20160819
  Receipt Date: 20160819
  Transmission Date: 20161109
  Serious: Yes (Other)
  Sender: FDA-Public Use
  Company Number: DZ-MEDAC PHARMA, INC.-1056515

PATIENT
  Age: 38 Year
  Sex: Male

DRUGS (2)
  1. METHOTREXATE. [Suspect]
     Active Substance: METHOTREXATE
     Indication: POLYARTHRITIS
  2. PSORALEN [Concomitant]
     Active Substance: PSORALEN

REACTIONS (1)
  - Cholangitis sclerosing [Unknown]
